FAERS Safety Report 10678343 (Version 1)
Quarter: 2014Q4

REPORT INFORMATION
  Report Type: Spontaneous
  Country: US (occurrence: None)
  Receive Date: 20141224
  Receipt Date: 20141224
  Transmission Date: 20150529
  Serious: Yes (Other)
  Sender: FDA-Public Use
  Company Number: None

PATIENT
  Age: 57 Year

DRUGS (1)
  1. LATUDA [Suspect]
     Active Substance: LURASIDONE HYDROCHLORIDE
     Indication: BIPOLAR DISORDER
     Dosage: 1 PILL DAILY
     Route: 048
     Dates: start: 20141001, end: 20141011

REACTIONS (2)
  - Head titubation [None]
  - Tremor [None]

NARRATIVE: CASE EVENT DATE: 20141222
